FAERS Safety Report 7219465-5 (Version None)
Quarter: 2011Q1

REPORT INFORMATION
  Report Type: 
  Country: None (occurrence: None)
  Receive Date: 20110103
  Receipt Date: 20101220
  Transmission Date: 20110831
  Serious: Yes (Hospitalization, Disabling, Other)
  Sender: FDA-Public Use
  Company Number: 2010P1003490

PATIENT
  Age: 38 Year
  Sex: Male
  Weight: 370 kg

DRUGS (9)
  1. COLCHICINE (WESTWARD) (NO PREF. NAME) [Suspect]
     Indication: GOUT
     Dosage: 0.6 MG;QID; PO;  0.6 MG;QD; PO , 0.6 MG;PRN; PO
     Route: 048
  2. COLCHICINE (WESTWARD) (NO PREF. NAME) [Suspect]
     Indication: GOUT
     Dosage: 0.6 MG;QID; PO;  0.6 MG;QD; PO , 0.6 MG;PRN; PO
     Route: 048
     Dates: end: 20100901
  3. COLCHICINE (WESTWARD) (NO PREF. NAME) [Suspect]
     Indication: GOUT
     Dosage: 0.6 MG;QID; PO;  0.6 MG;QD; PO , 0.6 MG;PRN; PO
     Route: 048
  4. LISINOPRIL [Concomitant]
  5. LORATADINE [Concomitant]
  6. VERAPAMIL [Concomitant]
  7. HYDROCHLOROTHIAZIDE [Concomitant]
  8. PAROXETINE HCL [Concomitant]
  9. RAZADYNE [Concomitant]

REACTIONS (10)
  - TENDERNESS [None]
  - GOUT [None]
  - INSOMNIA [None]
  - HEADACHE [None]
  - MUSCULAR WEAKNESS [None]
  - ABASIA [None]
  - WHEELCHAIR USER [None]
  - OEDEMA PERIPHERAL [None]
  - CONDITION AGGRAVATED [None]
  - WALKING AID USER [None]
